FAERS Safety Report 6544557-3 (Version None)
Quarter: 2010Q1

REPORT INFORMATION
  Report Type: 
  Country: None (occurrence: None)
  Receive Date: 20100115
  Receipt Date: 20100106
  Transmission Date: 20100710
  Serious: Yes (Hospitalization, Other)
  Sender: FDA-Public Use
  Company Number: 2009-04324

PATIENT
  Sex: Male
  Weight: 77 kg

DRUGS (2)
  1. VELCADE [Suspect]
     Indication: MULTIPLE MYELOMA
     Dosage: 2.5 MG, CYCLIC, INTRAVENOUS
     Route: 042
     Dates: start: 20090319, end: 20090723
  2. GRANISETRON  HCL [Concomitant]

REACTIONS (11)
  - ANAEMIA [None]
  - ASTHENIA [None]
  - BLOOD LACTATE DEHYDROGENASE INCREASED [None]
  - CARDIAC FAILURE [None]
  - DISEASE PROGRESSION [None]
  - HYPERCALCAEMIA [None]
  - HYPERSOMNIA [None]
  - PLASMACYTOMA [None]
  - PLEURAL EFFUSION [None]
  - SOMNOLENCE [None]
  - TRANSAMINASES INCREASED [None]
